FAERS Safety Report 8608411 (Version 2)
Quarter: 2014Q1

REPORT INFORMATION
  Report Type: Report from Study
  Country: AU (occurrence: AU)
  Receive Date: 20120611
  Receipt Date: 20140114
  Transmission Date: 20141002
  Serious: Yes (Hospitalization)
  Sender: FDA-Public Use
  Company Number: AU-ROCHE-1075563

PATIENT
  Age: 57 Year
  Sex: Female

DRUGS (6)
  1. BEVACIZUMAB [Suspect]
     Indication: GLIOBLASTOMA MULTIFORME
     Route: 065
     Dates: start: 20120509
  2. BEVACIZUMAB [Suspect]
     Route: 065
     Dates: start: 20120523
  3. CARBOPLATIN [Suspect]
     Indication: GLIOBLASTOMA MULTIFORME
     Route: 065
     Dates: start: 20120509
  4. LIPITOR [Concomitant]
     Route: 048
     Dates: start: 1997
  5. ESCITALOPRAM [Concomitant]
     Route: 048
     Dates: start: 2011
  6. OROXINE [Concomitant]
     Route: 048
     Dates: start: 1997

REACTIONS (1)
  - Skin disorder [Recovered/Resolved]
